FAERS Safety Report 17550835 (Version 3)
Quarter: 2020Q2

REPORT INFORMATION
  Report Type: Spontaneous
  Country: DK (occurrence: DK)
  Receive Date: 20200317
  Receipt Date: 20200616
  Transmission Date: 20200713
  Serious: Yes (Death)
  Sender: FDA-Public Use
  Company Number: DK-PFIZER INC-2020114357

PATIENT

DRUGS (2)
  1. ZESSLY [Suspect]
     Active Substance: INFLIXIMAB
     Dosage: UNK
     Route: 065
  2. RITUXIMAB. [Suspect]
     Active Substance: RITUXIMAB
     Dosage: UNK

REACTIONS (3)
  - Pneumocystis jirovecii pneumonia [Fatal]
  - Pneumonia [Fatal]
  - Pneumonia bacterial [Fatal]
